FAERS Safety Report 5858502-7 (Version None)
Quarter: 2008Q3

REPORT INFORMATION
  Report Type: 
  Country: None (occurrence: None)
  Receive Date: 20080826
  Receipt Date: 20080703
  Transmission Date: 20090109
  Serious: Yes (Death, Other)
  Sender: FDA-Public Use
  Company Number: US-WYE-H04814408

PATIENT

DRUGS (1)
  1. EFFEXOR XR [Suspect]
     Dosage: 75 MG, UNKNOWN FREQUENCY

REACTIONS (2)
  - BLOOD PRESSURE ABNORMAL [None]
  - DEATH [None]
